FAERS Safety Report 4571657-X (Version None)
Quarter: 2005Q1

REPORT INFORMATION
  Report Type: 
  Country: None (occurrence: None)
  Receive Date: 20050207
  Receipt Date: 20050127
  Transmission Date: 20050727
  Serious: Yes (Hospitalization)
  Sender: FDA-Public Use
  Company Number: US-AMGEN-US109825

PATIENT
  Age: 40 Year
  Sex: Female
  Weight: 120 kg

DRUGS (5)
  1. SENSIPAR [Suspect]
     Indication: HYPERPARATHYROIDISM SECONDARY
     Route: 048
     Dates: start: 20041213
  2. GABAPENTIN [Concomitant]
     Dates: start: 20040913
  3. SEVELAMER HCL [Concomitant]
     Dates: start: 20041020
  4. IBUPROFEN [Concomitant]
     Dates: start: 20041002
  5. EPOGEN [Concomitant]
     Indication: DIALYSIS
     Dates: start: 20050101

REACTIONS (4)
  - BLOOD PARATHYROID HORMONE INCREASED [None]
  - GASTRIC DISORDER [None]
  - PANCREATIC PSEUDOCYST [None]
  - PANCREATITIS ACUTE [None]
